FAERS Safety Report 26093628 (Version 1)
Quarter: 2025Q4

REPORT INFORMATION
  Report Type: Spontaneous
  Country: EU (occurrence: EU)
  Receive Date: 20251126
  Receipt Date: 20251126
  Transmission Date: 20260117
  Serious: Yes (Other)
  Sender: NOVO NORDISK
  Company Number: EU-NOVOPROD-1569516

PATIENT
  Sex: Male
  Weight: 2.7 kg

DRUGS (1)
  1. LEVEMIR [Suspect]
     Active Substance: INSULIN DETEMIR
     Indication: Product use issue
     Dosage: 12 IU, QD
     Route: 064

REACTIONS (5)
  - Neonatal respiratory failure [Unknown]
  - Septic shock [Unknown]
  - Bacterial sepsis [Unknown]
  - Premature baby [Unknown]
  - Foetal exposure during pregnancy [Unknown]
